FAERS Safety Report 22863908 (Version 4)
Quarter: 2025Q4

REPORT INFORMATION
  Report Type: Spontaneous
  Country: EU (occurrence: EU)
  Receive Date: 20230825
  Receipt Date: 20251005
  Transmission Date: 20260117
  Serious: Yes (Life-Threatening, Hospitalization, Disabling, Congenital Anomaly, Other)
  Sender: AUROBINDO
  Company Number: EU-DRMPP-20230809

PATIENT
  Sex: Female
  Weight: 3.34 kg

DRUGS (2)
  1. ACETAMINOPHEN [Suspect]
     Active Substance: ACETAMINOPHEN
     Indication: Migraine
     Dosage: UNK
     Route: 064
  2. NIMESULIDE [Suspect]
     Active Substance: NIMESULIDE
     Indication: Migraine
     Dosage: UNK
     Route: 064

REACTIONS (16)
  - Ductus arteriosus premature closure [Recovered/Resolved]
  - Right ventricular hypertrophy [Unknown]
  - Hypoxia [Unknown]
  - Tricuspid valve incompetence [Recovering/Resolving]
  - Pulmonary hypertension [Recovering/Resolving]
  - Cardiac hypertrophy [Recovering/Resolving]
  - Foetal exposure during pregnancy [Recovered/Resolved]
  - Congenital anomaly [Unknown]
  - Respiratory disorder [Unknown]
  - Premature baby [Unknown]
  - Heterotaxia [Unknown]
  - Neonatal behavioural syndrome [Unknown]
  - Tachypnoea [Unknown]
  - Upper respiratory tract congestion [Unknown]
  - Productive cough [Unknown]
  - Foetal exposure via father [Unknown]
